FAERS Safety Report 9981093 (Version 5)
Quarter: 2015Q1

REPORT INFORMATION
  Report Type: Report from Study
  Country: FR (occurrence: FR)
  Receive Date: 20140307
  Receipt Date: 20150120
  Transmission Date: 20150721
  Serious: Yes (Hospitalization)
  Sender: FDA-Public Use
  Company Number: FR-TEVA-467325USA

PATIENT
  Age: 77 Year
  Sex: Female
  Weight: 65 kg

DRUGS (8)
  1. LERCAN [Concomitant]
     Active Substance: LERCANIDIPINE
     Indication: HYPERTENSION
     Route: 065
  2. LEVOTHYROX [Concomitant]
     Active Substance: LEVOTHYROXINE
     Indication: HYPOTHYROIDISM
     Route: 065
  3. RITUXIMAB [Suspect]
     Active Substance: RITUXIMAB
     Route: 042
     Dates: start: 20140206, end: 20140207
  4. BENDAMUSTINE HYDROCHLORIDE [Suspect]
     Active Substance: BENDAMUSTINE HYDROCHLORIDE
     Indication: MANTLE CELL LYMPHOMA
     Route: 042
  5. COOLMETEC [Concomitant]
     Active Substance: HYDROCHLOROTHIAZIDE\OLMESARTAN MEDOXOMIL
     Indication: HYPERTENSION
     Route: 065
  6. TENORMIN [Concomitant]
     Active Substance: ATENOLOL
     Indication: HYPERTENSION
     Route: 065
  7. RITUXIMAB [Suspect]
     Active Substance: RITUXIMAB
     Indication: MANTLE CELL LYMPHOMA
     Route: 042
  8. BENDAMUSTINE HYDROCHLORIDE [Suspect]
     Active Substance: BENDAMUSTINE HYDROCHLORIDE
     Route: 042
     Dates: start: 20140206, end: 20140207

REACTIONS (1)
  - Atrial fibrillation [Recovered/Resolved]

NARRATIVE: CASE EVENT DATE: 20140224
